FAERS Safety Report 9653641 (Version 2)
Quarter: 2014Q1

REPORT INFORMATION
  Report Type: Spontaneous
  Country: US (occurrence: US)
  Receive Date: 20131029
  Receipt Date: 20140213
  Transmission Date: 20141002
  Serious: Yes (Death, Hospitalization)
  Sender: FDA-Public Use
  Company Number: US-B.I. PHARMACEUTICALS,INC./RIDGEFIELD-2013-BI-34662BP

PATIENT
  Sex: Female
  Weight: 57.61 kg

DRUGS (12)
  1. PRADAXA [Suspect]
     Indication: CEREBROVASCULAR ACCIDENT PROPHYLAXIS
     Dosage: 300 MG
     Route: 048
     Dates: start: 20120117, end: 20120123
  2. PRADAXA [Suspect]
     Indication: THROMBOSIS PROPHYLAXIS
  3. ECOTRIN [Concomitant]
     Dosage: 81 MG
     Route: 048
  4. ARICEPT [Concomitant]
     Dosage: 5 MG
     Route: 048
     Dates: start: 2007, end: 2012
  5. METOPROLOL [Concomitant]
     Dosage: 50 MG
     Route: 048
     Dates: start: 2009, end: 2012
  6. PRAVASTATIN [Concomitant]
     Dosage: 80 MG
     Route: 048
     Dates: start: 2007, end: 2012
  7. GABAPENTIN [Concomitant]
     Dosage: 100 MG
     Route: 048
     Dates: start: 2009, end: 2012
  8. LOSARTAN [Concomitant]
     Dosage: 50 MG
     Route: 048
     Dates: start: 2011, end: 2012
  9. CLONAZEPAM [Concomitant]
     Dosage: 1 MG
     Route: 048
     Dates: start: 2011, end: 2012
  10. OMEPRAZOLE [Concomitant]
     Dosage: 20 MG
     Route: 048
  11. PAROXETINE [Concomitant]
     Dosage: 30 MG
     Route: 048
     Dates: start: 2007, end: 2012
  12. HYDROCODONE [Concomitant]
     Route: 048

REACTIONS (10)
  - Gastrointestinal haemorrhage [Fatal]
  - Renal failure acute [Fatal]
  - Septic shock [Fatal]
  - Vaginal haemorrhage [Unknown]
  - Haematuria [Unknown]
  - Anaemia [Unknown]
  - Shock haemorrhagic [Unknown]
  - Coagulopathy [Unknown]
  - Respiratory failure [Unknown]
  - Acute hepatic failure [Unknown]
